FAERS Safety Report 20257334 (Version 1)
Quarter: 2021Q4

REPORT INFORMATION
  Report Type: Spontaneous
  Country: AU (occurrence: AU)
  Receive Date: 20211230
  Receipt Date: 20211230
  Transmission Date: 20220303
  Serious: Yes (Other)
  Sender: FDA-Public Use
  Company Number: AU-AMGEN-AUSSP2021204725

PATIENT
  Age: 74 Year
  Sex: Male

DRUGS (24)
  1. FILGRASTIM [Suspect]
     Active Substance: FILGRASTIM
     Indication: Product used for unknown indication
     Dosage: UNK
     Route: 065
  2. RITUXIMAB [Suspect]
     Active Substance: RITUXIMAB
     Indication: Diffuse large B-cell lymphoma
     Dosage: UNK
     Route: 065
     Dates: start: 20200522, end: 20201001
  3. RITUXIMAB [Suspect]
     Active Substance: RITUXIMAB
     Dosage: UNK
     Route: 065
     Dates: start: 20201104, end: 20201203
  4. CYCLOPHOSPHAMIDE [Suspect]
     Active Substance: CYCLOPHOSPHAMIDE
     Indication: Diffuse large B-cell lymphoma
     Dosage: UNK
     Route: 065
     Dates: start: 20200522, end: 20201001
  5. DOXORUBICIN HYDROCHLORIDE [Suspect]
     Active Substance: DOXORUBICIN HYDROCHLORIDE
     Indication: Diffuse large B-cell lymphoma
     Dosage: UNK
     Route: 065
     Dates: start: 20200522, end: 20201001
  6. VINCRISTINE SULFATE [Suspect]
     Active Substance: VINCRISTINE SULFATE
     Indication: Diffuse large B-cell lymphoma
     Dosage: UNK
     Route: 065
     Dates: start: 20200522, end: 20201001
  7. PREDNISOLONE [Suspect]
     Active Substance: PREDNISOLONE
     Indication: Diffuse large B-cell lymphoma
     Dosage: UNK
     Route: 065
     Dates: start: 20200522, end: 20201001
  8. OXALIPLATIN [Suspect]
     Active Substance: OXALIPLATIN
     Indication: Diffuse large B-cell lymphoma
     Dosage: UNK
     Route: 065
     Dates: start: 20201104, end: 20201203
  9. GEMCITABINE HYDROCHLORIDE [Suspect]
     Active Substance: GEMCITABINE HYDROCHLORIDE
     Indication: Diffuse large B-cell lymphoma
     Dosage: UNK
     Route: 065
     Dates: start: 20201104, end: 20201203
  10. ETOPOSIDE [Suspect]
     Active Substance: ETOPOSIDE
     Indication: Product used for unknown indication
     Route: 065
  11. CARBOPLATIN [Suspect]
     Active Substance: CARBOPLATIN
     Indication: Product used for unknown indication
     Route: 065
  12. IFOSFAMIDE [Suspect]
     Active Substance: IFOSFAMIDE
     Indication: Product used for unknown indication
     Route: 065
  13. MESNA [Suspect]
     Active Substance: MESNA
     Indication: Product used for unknown indication
     Dosage: UNK
     Route: 065
  14. LENALIDOMIDE [Suspect]
     Active Substance: LENALIDOMIDE
     Indication: Product used for unknown indication
     Dosage: UNK
     Route: 065
     Dates: start: 20201215, end: 20210122
  15. APIXABAN [Concomitant]
     Active Substance: APIXABAN
     Dosage: 5 MILLIGRAM
  16. VALACYCLOVIR HYDROCHLORIDE [Concomitant]
     Active Substance: VALACYCLOVIR HYDROCHLORIDE
     Dosage: 500 MILLIGRAM, FOR 1 DAY
  17. FLUCONAZOLE [Concomitant]
     Active Substance: FLUCONAZOLE
     Dosage: 200 MILLIGRAM, FOR 1 DAY
  18. POTASSIUM CHLORIDE [Concomitant]
     Active Substance: POTASSIUM CHLORIDE
  19. MAGNESIUM [Concomitant]
     Active Substance: MAGNESIUM
  20. PANTOPRAZOLE [Concomitant]
     Active Substance: PANTOPRAZOLE
     Dosage: 40 MILLIGRAM, FOR 1 DAY
  21. BACTRIM DS [Concomitant]
     Active Substance: SULFAMETHOXAZOLE\TRIMETHOPRIM
  22. TRIMETHOPRIM [Concomitant]
     Active Substance: TRIMETHOPRIM
  23. GAZYVA [Concomitant]
     Active Substance: OBINUTUZUMAB
     Dosage: FOR 21 DAY
     Route: 042
  24. GLOFITAMAB [Concomitant]
     Active Substance: GLOFITAMAB
     Dosage: FOR 21 DAY
     Route: 042

REACTIONS (11)
  - Cytopenia [Unknown]
  - Neuropathy peripheral [Unknown]
  - Neutropenia [Unknown]
  - Renal injury [Unknown]
  - Neutropenic sepsis [Unknown]
  - Disease progression [Unknown]
  - Drug ineffective [Unknown]
  - Ill-defined disorder [Unknown]
  - Infection [Unknown]
  - Lung disorder [Unknown]
  - Therapy non-responder [Unknown]
